FAERS Safety Report 7304540-7 (Version None)
Quarter: 2011Q1

REPORT INFORMATION
  Report Type: 
  Country: None (occurrence: None)
  Receive Date: 20110221
  Receipt Date: 20101022
  Transmission Date: 20110831
  Serious: Yes (Hospitalization, Disabling, Other)
  Sender: FDA-Public Use
  Company Number: PHHY2010RU71028

PATIENT
  Age: 32 Year
  Sex: Female

DRUGS (3)
  1. TASIGNA [Suspect]
     Indication: CHRONIC MYELOID LEUKAEMIA (IN REMISSION)
     Dosage: 400 MG, BID
     Route: 051
     Dates: start: 20091201
  2. DIURETICS [Concomitant]
     Dates: start: 20100101
  3. ANTIBACTERIALS FOR SYSTEMIC USE [Concomitant]
     Dates: start: 20100101

REACTIONS (5)
  - FACE OEDEMA [None]
  - BLINDNESS [None]
  - RASH [None]
  - THERAPEUTIC RESPONSE DECREASED [None]
  - OPTIC ATROPHY [None]
